FAERS Safety Report 26135103 (Version 1)
Quarter: 2025Q4

REPORT INFORMATION
  Report Type: Spontaneous
  Country: EU (occurrence: EU)
  Receive Date: 20251209
  Receipt Date: 20251209
  Transmission Date: 20260117
  Serious: Yes (Hospitalization, Other)
  Sender: SOMERSET THERAPEUTICS, LLC
  Company Number: EU-MIT-25-75-PT-2025-SOM-LIT-00460

PATIENT
  Age: 31 Year
  Sex: Male

DRUGS (6)
  1. VERAPAMIL HYDROCHLORIDE [Suspect]
     Active Substance: VERAPAMIL HYDROCHLORIDE
     Indication: Tachycardia
     Route: 042
  2. VERAPAMIL HYDROCHLORIDE [Suspect]
     Active Substance: VERAPAMIL HYDROCHLORIDE
     Indication: Tachyarrhythmia
  3. ADENOSINE [Suspect]
     Active Substance: ADENOSINE
     Indication: Tachycardia
     Route: 042
  4. ADENOSINE [Suspect]
     Active Substance: ADENOSINE
     Indication: Tachyarrhythmia
  5. ADENOSINE [Suspect]
     Active Substance: ADENOSINE
     Indication: Tachycardia
     Route: 042
  6. ADENOSINE [Suspect]
     Active Substance: ADENOSINE
     Indication: Tachyarrhythmia

REACTIONS (2)
  - Ventricular fibrillation [Recovered/Resolved]
  - Product use in unapproved indication [Unknown]
